FAERS Safety Report 7775963-7 (Version None)
Quarter: 2011Q3

REPORT INFORMATION
  Report Type: 
  Country: None (occurrence: None)
  Receive Date: 20110923
  Receipt Date: 20110908
  Transmission Date: 20111222
  Serious: Yes (Disabling, Other)
  Sender: FDA-Public Use
  Company Number: PL-GENENTECH-322753

PATIENT
  Age: 75 Year
  Sex: Female

DRUGS (2)
  1. ACTIVASE [Suspect]
     Indication: THROMBOLYSIS
  2. ACTIVASE [Suspect]
     Indication: ISCHAEMIC STROKE

REACTIONS (6)
  - HEMIPARESIS [None]
  - PSEUDOBULBAR PALSY [None]
  - CEREBROVASCULAR ACCIDENT [None]
  - LOSS OF CONSCIOUSNESS [None]
  - APHASIA [None]
  - HAEMORRHAGIC TRANSFORMATION STROKE [None]
